FAERS Safety Report 4623083-2 (Version None)
Quarter: 2005Q1

REPORT INFORMATION
  Report Type: 
  Country: None (occurrence: None)
  Receive Date: 20050328
  Receipt Date: 20050328
  Transmission Date: 20050727
  Serious: Yes (Hospitalization)
  Sender: FDA-Public Use
  Company Number: None

PATIENT
  Age: 53 Year
  Sex: Female
  Weight: 83.4619 kg

DRUGS (5)
  1. CELEBREX [Suspect]
     Indication: SCIATICA
     Dosage: 200 MG ONE DAILY
     Dates: start: 20050321, end: 20050322
  2. HYZAR [Concomitant]
  3. ACCUPRIL [Concomitant]
  4. COREG [Concomitant]
  5. ULTRACET [Concomitant]

REACTIONS (3)
  - CHEST DISCOMFORT [None]
  - CHEST PAIN [None]
  - PLATELET ADHESIVENESS ABNORMAL [None]
